FAERS Safety Report 7797899-8 (Version None)
Quarter: 2011Q4

REPORT INFORMATION
  Report Type: 
  Country: None (occurrence: None)
  Receive Date: 20111005
  Receipt Date: 20110927
  Transmission Date: 20120403
  Serious: No
  Sender: FDA-Public Use
  Company Number: BE-JNJFOC-20110911230

PATIENT
  Sex: Female
  Weight: 81 kg

DRUGS (10)
  1. DICLOFENAC [Concomitant]
     Route: 048
  2. ACETYLSALICYLIC ACID SRT [Concomitant]
     Route: 048
     Dates: start: 20101220
  3. GOLIMUMAB [Suspect]
     Indication: PSORIATIC ARTHROPATHY
     Route: 058
     Dates: start: 20060807
  4. NAPROXYNE [Concomitant]
     Route: 048
     Dates: start: 20050101
  5. CALCIUM CARBONATE [Concomitant]
     Route: 048
     Dates: start: 20100422
  6. GOLIMUMAB [Suspect]
     Route: 058
  7. ZOLPIDEM HEMITARTRAAT [Concomitant]
     Route: 048
     Dates: start: 20060701
  8. OMEPRAZOLE [Concomitant]
     Route: 048
     Dates: start: 20090101
  9. TIBOLONE [Concomitant]
     Route: 048
     Dates: start: 20080925
  10. VALSARTAN [Concomitant]
     Route: 048
     Dates: start: 20091226

REACTIONS (1)
  - BASAL CELL CARCINOMA [None]
